FAERS Safety Report 17793603 (Version 1)
Quarter: 2020Q2

REPORT INFORMATION
  Report Type: Spontaneous
  Country: BR (occurrence: BR)
  Receive Date: 20200515
  Receipt Date: 20200515
  Transmission Date: 20200714
  Serious: Yes (Death)
  Sender: FDA-Public Use
  Company Number: BR-GUERBET-BR-20200132

PATIENT
  Age: 54 Year
  Sex: Female

DRUGS (2)
  1. CYANOACRYLATE [Concomitant]
     Active Substance: OCRYLATE
     Indication: SCLEROTHERAPY
     Dosage: 2 INJECTIONS OF 0,5 ML
     Route: 065
  2. LIPIODOL [Suspect]
     Active Substance: ETHIODIZED OIL
     Indication: SCLEROTHERAPY
     Dosage: TWO INJECTIONS OF 0.8 ML
     Route: 065

REACTIONS (5)
  - Renal infarct [Fatal]
  - Cerebral artery embolism [Fatal]
  - Product use in unapproved indication [Fatal]
  - Renal embolism [Fatal]
  - Cerebral infarction [Fatal]
